FAERS Safety Report 10157110 (Version 1)
Quarter: 2014Q2

REPORT INFORMATION
  Report Type: Report from Study
  Country: AU (occurrence: AU)
  Receive Date: 20140507
  Receipt Date: 20140507
  Transmission Date: 20141212
  Serious: Yes (Death)
  Sender: FDA-Public Use
  Company Number: AU-MPIJNJ-2014JNJ003348

PATIENT
  Sex: 0

DRUGS (9)
  1. VELCADE [Suspect]
     Indication: AMYLOIDOSIS
     Dosage: 2.59 MG, UNK
     Route: 058
     Dates: start: 20140203, end: 20140213
  2. MELPHALAN [Suspect]
     Indication: AMYLOIDOSIS
     Dosage: 18 MG, UNK
     Route: 048
     Dates: start: 20140203, end: 20140206
  3. DEXAMETHASONE [Suspect]
     Indication: AMYLOIDOSIS
     Dosage: 40 MG, UNK
     Route: 048
     Dates: start: 20140203, end: 20140206
  4. METOCLOPRAMIDE [Concomitant]
     Route: 048
  5. VALACICLOVIR [Concomitant]
     Dosage: 500 MG, UNK
     Route: 048
  6. CIPROFLOXACIN [Concomitant]
     Dosage: 250 MG, UNK
     Route: 048
  7. LOPERAMIDE [Concomitant]
     Dosage: 2 MG, UNK
     Route: 048
  8. PANTOPRAZOLE [Concomitant]
     Dosage: 40 MG, UNK
     Route: 048
  9. PYRIDOXINE [Concomitant]
     Dosage: 50 MG, UNK
     Route: 048

REACTIONS (1)
  - Sudden cardiac death [Fatal]
